FAERS Safety Report 9583870 (Version 1)
Quarter: 2013Q4

REPORT INFORMATION
  Report Type: Spontaneous
  Country: US (occurrence: US)
  Receive Date: 20131002
  Receipt Date: 20131002
  Transmission Date: 20140711
  Serious: No
  Sender: FDA-Public Use
  Company Number: US-AMGEN-USASP2013049439

PATIENT
  Age: 63 Year
  Sex: Male
  Weight: 73.47 kg

DRUGS (13)
  1. ENBREL [Suspect]
     Indication: PRODUCT USED FOR UNKNOWN INDICATION
     Dosage: 50 MG, QWK
     Route: 058
  2. VOLTAREN                           /00372301/ [Concomitant]
     Dosage: 75 MG, UNK
  3. ULTRACET [Concomitant]
     Dosage: 37.5 - 325
  4. RAMIPRIL [Concomitant]
     Dosage: 10 MG, UNK
  5. METHOTREXATE [Concomitant]
     Dosage: 2.5 MG, UNK
  6. PREDNISONE [Concomitant]
     Dosage: 5 MG, UNK
  7. FENTANYL CIT [Concomitant]
     Dosage: 0.05 MG, UNK
  8. NEXIUM                             /01479302/ [Concomitant]
     Dosage: 40 MG, UNK
  9. VITAMIN D                          /00107901/ [Concomitant]
     Dosage: 50000 UNIT, UNK
  10. IRON [Concomitant]
     Dosage: 325 MG, UNK
  11. CALCIUM D                          /01483701/ [Concomitant]
     Dosage: UNK
  12. ASPIRIN [Concomitant]
     Dosage: 81 MG, UNK
  13. FOLIC ACID [Concomitant]

REACTIONS (2)
  - Fatigue [Unknown]
  - Rheumatoid arthritis [Unknown]
